FAERS Safety Report 14731494 (Version 1)
Quarter: 2018Q2

REPORT INFORMATION
  Report Type: Spontaneous
  Country: US (occurrence: US)
  Receive Date: 20180407
  Receipt Date: 20180407
  Transmission Date: 20180711
  Serious: No
  Sender: FDA-Public Use
  Company Number: US-TEVA-2018-US-878006

PATIENT
  Sex: Female

DRUGS (2)
  1. ESTRADIOL VALERATE. [Suspect]
     Active Substance: ESTRADIOL VALERATE
     Indication: VULVOVAGINAL DRYNESS
     Route: 065
  2. ESTRADIOL VALERATE. [Suspect]
     Active Substance: ESTRADIOL VALERATE
     Indication: ATROPHIC VULVOVAGINITIS

REACTIONS (1)
  - Diplopia [Not Recovered/Not Resolved]

NARRATIVE: CASE EVENT DATE: 2017
